FAERS Safety Report 8984418 (Version 1)
Quarter: 2012Q4

REPORT INFORMATION
  Report Type: Spontaneous
  Country: GB (occurrence: None)
  Receive Date: 20121213
  Receipt Date: 20121213
  Transmission Date: 20130627
  Serious: Yes (Disabling)
  Sender: FDA-Public Use
  Company Number: GER/UKI/12/0027004

PATIENT
  Age: 16 Year
  Sex: Female

DRUGS (1)
  1. FLUOXETINE [Suspect]
     Indication: DEPRESSION
     Route: 048
     Dates: start: 20121107, end: 20121119

REACTIONS (8)
  - Dyskinesia [None]
  - Headache [None]
  - Hypokinesia [None]
  - Hypokinesia [None]
  - Feeling abnormal [None]
  - Feeling abnormal [None]
  - Dizziness [None]
  - Dizziness [None]
